FAERS Safety Report 16008830 (Version 1)
Quarter: 2019Q1

REPORT INFORMATION
  Report Type: Spontaneous
  Country: CA (occurrence: CA)
  Receive Date: 20190226
  Receipt Date: 20190226
  Transmission Date: 20190418
  Serious: Yes (Other)
  Sender: FDA-Public Use
  Company Number: CA-PFIZER INC-2019079892

PATIENT
  Sex: Female

DRUGS (1)
  1. MIN-OVRAL-21 [Suspect]
     Active Substance: ETHINYL ESTRADIOL\LEVONORGESTREL
     Indication: CONTRACEPTION
     Dosage: UNK
     Dates: start: 2012, end: 2012

REACTIONS (3)
  - Hepatic adenoma [Recovered/Resolved]
  - Cervix neoplasm [Recovered/Resolved]
  - Breast mass [Recovered/Resolved]
